FAERS Safety Report 24396901 (Version 9)
Quarter: 2025Q1

REPORT INFORMATION
  Report Type: Spontaneous
  Country: US (occurrence: US)
  Receive Date: 20241004
  Receipt Date: 20250304
  Transmission Date: 20250409
  Serious: No
  Sender: PFIZER
  Company Number: US-PFIZER INC-PV202400101961

PATIENT
  Age: 11 Year
  Sex: Female
  Weight: 24.94 kg

DRUGS (2)
  1. GENOTROPIN [Suspect]
     Active Substance: SOMATROPIN
     Indication: Small for dates baby
     Dosage: 1.6 MG, DAILY
     Route: 058
     Dates: start: 20240923
  2. GENOTROPIN [Suspect]
     Active Substance: SOMATROPIN
     Dosage: 1.6 MG, 7 DAYS PER WEEK
     Route: 058

REACTIONS (3)
  - Injection site haemorrhage [Unknown]
  - Injection site pain [Unknown]
  - Device leakage [Unknown]

NARRATIVE: CASE EVENT DATE: 20240901
